FAERS Safety Report 6877180-1 (Version None)
Quarter: 2010Q3

REPORT INFORMATION
  Report Type: 
  Country: None (occurrence: None)
  Receive Date: 20100727
  Receipt Date: 20100727
  Transmission Date: 20110219
  Serious: Yes (Other)
  Sender: FDA-Public Use
  Company Number: None

PATIENT
  Age: 41 Year
  Sex: Female
  Weight: 50.3493 kg

DRUGS (2)
  1. DYSPORT [Suspect]
     Indication: FACIAL OPERATION
     Dosage: 85 UNITS
     Dates: start: 20091026, end: 20100618
  2. DYSPORT [Suspect]
     Indication: SKIN WRINKLING
     Dosage: 85 UNITS
     Dates: start: 20091026, end: 20100618

REACTIONS (3)
  - BLISTER [None]
  - RASH ERYTHEMATOUS [None]
  - URTICARIA [None]
